FAERS Safety Report 25015796 (Version 1)
Quarter: 2025Q1

REPORT INFORMATION
  Report Type: Spontaneous
  Country: GB (occurrence: GB)
  Receive Date: 20250227
  Receipt Date: 20250227
  Transmission Date: 20250408
  Serious: Yes (Other)
  Sender: JOHNSON AND JOHNSON
  Company Number: GB-JNJFOC-20250260323

PATIENT
  Age: 67 Year
  Sex: Male

DRUGS (2)
  1. STELARA [Suspect]
     Active Substance: USTEKINUMAB
     Indication: Product use in unapproved indication
     Route: 058
     Dates: end: 202103
  2. SULFASALAZINE [Suspect]
     Active Substance: SULFASALAZINE
     Indication: Product use in unapproved indication
     Route: 065

REACTIONS (5)
  - Acute myocardial infarction [Unknown]
  - Nausea [Unknown]
  - Constipation [Unknown]
  - Enthesopathy [Unknown]
  - Psoriasis [Recovering/Resolving]

NARRATIVE: CASE EVENT DATE: 20200101
